FAERS Safety Report 10600083 (Version 1)
Quarter: 2014Q4

REPORT INFORMATION
  Report Type: Spontaneous
  Country: US (occurrence: US)
  Receive Date: 20141122
  Receipt Date: 20141122
  Transmission Date: 20150529
  Serious: No
  Sender: FDA-Public Use
  Company Number: US-SA-2014SA081285

PATIENT

DRUGS (1)
  1. RENVELA [Suspect]
     Active Substance: SEVELAMER CARBONATE
     Indication: PRODUCT USED FOR UNKNOWN INDICATION
     Dosage: 0.8 GM- 2 PACKETS 3 TIMES PER DAY WITH MEALS
     Route: 048

REACTIONS (1)
  - Constipation [Not Recovered/Not Resolved]
